FAERS Safety Report 5156297-6 (Version None)
Quarter: 2006Q4

REPORT INFORMATION
  Report Type: 
  Country: None (occurrence: None)
  Receive Date: 20061122
  Receipt Date: 20061117
  Transmission Date: 20070319
  Serious: Yes (Other)
  Sender: FDA-Public Use
  Company Number: US-GLAXOSMITHKLINE-A0628152A

PATIENT
  Sex: Female

DRUGS (2)
  1. AVANDIA [Suspect]
     Dosage: 8MG TWICE PER DAY
  2. AMARYL [Suspect]
     Dosage: 8MG TWICE PER DAY

REACTIONS (5)
  - DECREASED APPETITE [None]
  - FLUID RETENTION [None]
  - OVERDOSE [None]
  - SLEEP DISORDER [None]
  - WEIGHT INCREASED [None]
